FAERS Safety Report 8447102 (Version 2)
Quarter: 2012Q4

REPORT INFORMATION
  Report Type: Report from Study
  Country: DE (occurrence: DE)
  Receive Date: 20120308
  Receipt Date: 20121001
  Transmission Date: 20130627
  Serious: Yes (Death)
  Sender: FDA-Public Use
  Company Number: DE-MILLENNIUM PHARMACEUTICALS, INC.-2012-01540

PATIENT

DRUGS (4)
  1. VELCADE [Suspect]
     Indication: MULTIPLE MYELOMA
     Dosage: UNK
     Dates: start: 20111121, end: 20120119
  2. COTRIM [Concomitant]
     Dosage: UNK
     Dates: start: 20080410, end: 20120122
  3. ASS [Concomitant]
     Dosage: UNK
     Dates: start: 200808, end: 20120122
  4. BONDRONAT                          /01304701/ [Concomitant]
     Dosage: UNK
     Dates: start: 20080430, end: 20100109

REACTIONS (1)
  - Death [Fatal]
